FAERS Safety Report 7211485-X (Version None)
Quarter: 2011Q1

REPORT INFORMATION
  Report Type: 
  Country: None (occurrence: None)
  Receive Date: 20110105
  Receipt Date: 20101223
  Transmission Date: 20110831
  Serious: Yes (Disabling)
  Sender: FDA-Public Use
  Company Number: ES-ELI_LILLY_AND_COMPANY-ES201012006143

PATIENT
  Age: 58 Year
  Sex: Female
  Weight: 80 kg

DRUGS (5)
  1. BYETTA [Suspect]
     Indication: DIABETES MELLITUS
     Dosage: UNK, UNKNOWN
     Route: 058
     Dates: start: 20100901, end: 20101001
  2. METFORMIN HCL [Concomitant]
     Dosage: 1 G, DAILY (1/D)
  3. EXFORGE [Concomitant]
     Indication: HYPERTENSION
     Dosage: 1 D/F, EACH EVENING
     Route: 048
  4. BYETTA [Suspect]
     Dosage: 10 UG, 2/D
     Route: 058
     Dates: start: 20101001
  5. METFORMIN HCL [Concomitant]
     Indication: DIABETES MELLITUS
     Dosage: 1 G, 2/D
     Route: 048
     Dates: start: 20101101

REACTIONS (5)
  - PRURITUS [None]
  - DIPLOPIA [None]
  - OEDEMA PERIPHERAL [None]
  - BRONCHIECTASIS [None]
  - PAIN IN EXTREMITY [None]
